FAERS Safety Report 6107681-5 (Version None)
Quarter: 2009Q1

REPORT INFORMATION
  Report Type: 
  Country: None (occurrence: None)
  Receive Date: 20090309
  Receipt Date: 20090306
  Transmission Date: 20090719
  Serious: Yes (Hospitalization)
  Sender: FDA-Public Use
  Company Number: A0763969A

PATIENT
  Age: 27 Year
  Sex: Male

DRUGS (1)
  1. ASPIRIN [Suspect]
     Indication: DRUG USE FOR UNKNOWN INDICATION
     Dosage: 650MG SIX TIMES PER DAY
     Route: 048
     Dates: start: 20080409

REACTIONS (3)
  - HAEMARTHROSIS [None]
  - JOINT EFFUSION [None]
  - STAPHYLOCOCCAL INFECTION [None]
